FAERS Safety Report 21404831 (Version 1)
Quarter: 2022Q4

REPORT INFORMATION
  Report Type: Spontaneous
  Country: DK (occurrence: DK)
  Receive Date: 20221003
  Receipt Date: 20221003
  Transmission Date: 20230113
  Serious: Yes (Hospitalization)
  Sender: FDA-Public Use
  Company Number: None

PATIENT
  Age: 7 Decade
  Sex: Female

DRUGS (2)
  1. PROLIA [Suspect]
     Active Substance: DENOSUMAB
     Indication: Osteoporosis
     Dosage: DOSE: UNKNOWN. STRENGTH: 60 MG/ML
     Route: 065
     Dates: start: 2018
  2. PROLIA [Suspect]
     Active Substance: DENOSUMAB
     Dosage: DOSE:: UNKNOWNSTRENGTH: 60 MG/ML
     Route: 065
     Dates: start: 201708, end: 201804

REACTIONS (14)
  - Gingivitis [Unknown]
  - Jaw fracture [Recovering/Resolving]
  - Osteomyelitis [Not Recovered/Not Resolved]
  - Tooth abscess [Recovered/Resolved]
  - Tenderness [Recovering/Resolving]
  - Skin wound [Recovering/Resolving]
  - Pain in jaw [Unknown]
  - Trismus [Recovering/Resolving]
  - Jaw fistula [Recovering/Resolving]
  - Respiratory tract infection [Unknown]
  - Pyrexia [Recovered/Resolved]
  - Swelling face [Unknown]
  - Swelling face [Recovering/Resolving]
  - Osteonecrosis of jaw [Not Recovered/Not Resolved]

NARRATIVE: CASE EVENT DATE: 20200101
